FAERS Safety Report 8066147-6 (Version None)
Quarter: 2012Q1

REPORT INFORMATION
  Report Type: 
  Country: None (occurrence: None)
  Receive Date: 20120117
  Receipt Date: 20111214
  Transmission Date: 20120608
  Serious: No
  Sender: FDA-Public Use
  Company Number: THQ2011A08313

PATIENT
  Age: 58 Year
  Sex: Female

DRUGS (4)
  1. LANSOPRAZOLE [Suspect]
     Indication: DYSPEPSIA
     Dosage: 15 MG Z(1 TAB) PER ORAL, PER ORAL
     Route: 048
  2. LANSOPRAZOLE [Suspect]
     Indication: DYSPEPSIA
     Dosage: 15 MG Z(1 TAB) PER ORAL, PER ORAL
     Route: 048
  3. LOSARTAN + HYDROCHLOROTHIAZIDE (HYDROCHLOROTHIAZIDE, LOSARTAN POTASSIU [Concomitant]
  4. ZANICOR (LERCANIDIPINE) [Concomitant]

REACTIONS (1)
  - VISUAL IMPAIRMENT [None]
